FAERS Safety Report 11120991 (Version 1)
Quarter: 2015Q2

REPORT INFORMATION
  Report Type: Other
  Country: BR (occurrence: BR)
  Receive Date: 20150519
  Receipt Date: 20150519
  Transmission Date: 20150821
  Serious: Yes (Other)
  Sender: FDA-Public Use
  Company Number: BR-LUPIN PHARMACEUTICALS INC.-2015-01328

PATIENT
  Age: 63 Year
  Sex: Female

DRUGS (1)
  1. METFORMIN [Suspect]
     Active Substance: METFORMIN HYDROCHLORIDE
     Indication: TYPE 2 DIABETES MELLITUS
     Route: 065

REACTIONS (2)
  - Parkinsonism [Unknown]
  - Metabolic acidosis [Unknown]
